FAERS Safety Report 8905479 (Version 1)
Quarter: 2012Q4

REPORT INFORMATION
  Report Type: 
  Country: US (occurrence: US)
  Receive Date: 20121112
  Receipt Date: 20121112
  Transmission Date: 20130627
  Serious: Yes (Other)
  Sender: FDA-Public Use
  Company Number: US-BAYER-2012-116603

PATIENT
  Age: 48 Year
  Sex: Female
  Weight: 63.95 kg

DRUGS (10)
  1. YAZ [Suspect]
  2. PROTONIX [Concomitant]
     Dosage: 40 mg, UNK
     Route: 048
  3. EFFEXOR [Concomitant]
     Dosage: 150 mg, UNK
     Route: 048
  4. TRAZODONE [Concomitant]
     Dosage: 50 mg, UNK
  5. FLONASE [Concomitant]
     Dosage: 50 mcg
     Route: 045
  6. ADVIL [Concomitant]
     Indication: MENSTRUAL CRAMPS
     Dosage: 200 mg, PRN
     Route: 048
  7. CLARITIN [Concomitant]
     Dosage: 10 mg, PRN
     Route: 048
  8. INFLUENZA VACCINE [Concomitant]
  9. DRISDOL [Concomitant]
     Indication: VITAMIN D DEFICIENCY
     Dosage: 50,000 units one pill once per week for 8 doses
     Route: 048
  10. IBUPROFEN [Concomitant]
     Route: 048

REACTIONS (2)
  - Deep vein thrombosis [None]
  - Deep vein thrombosis [None]
